FAERS Safety Report 4809184-4 (Version None)
Quarter: 2005Q4

REPORT INFORMATION
  Report Type: 
  Country: None (occurrence: None)
  Receive Date: 20051021
  Receipt Date: 20030312
  Transmission Date: 20060501
  Serious: No
  Sender: FDA-Public Use
  Company Number: EWC030334288

PATIENT
  Age: 57 Year
  Sex: Male

DRUGS (3)
  1. ZYPREXA [Suspect]
     Indication: SCHIZOPHRENIA
     Dosage: 20 MG/DAY
     Dates: start: 20020923
  2. ZOLOFT [Concomitant]
  3. LORAZEPAM [Concomitant]

REACTIONS (3)
  - CONDITION AGGRAVATED [None]
  - LEUKOCYTOSIS [None]
  - SCHIZOPHRENIA [None]
